FAERS Safety Report 17404090 (Version 1)
Quarter: 2020Q1

REPORT INFORMATION
  Report Type: Spontaneous
  Country: US (occurrence: US)
  Receive Date: 20200211
  Receipt Date: 20200211
  Transmission Date: 20200409
  Serious: No
  Sender: FDA-Public Use
  Company Number: US-ALNYLAM PHARMACEUTICALS, INC.-ALN-2020-000131

PATIENT
  Age: 44 Year
  Sex: Female

DRUGS (19)
  1. REGLAN [Concomitant]
     Active Substance: METOCLOPRAMIDE HYDROCHLORIDE
     Indication: PRODUCT USED FOR UNKNOWN INDICATION
     Dosage: 10 MILLIGRAM, BID
     Route: 048
  2. PARACETAMOL [Concomitant]
     Active Substance: ACETAMINOPHEN
     Indication: PROPHYLAXIS
     Dosage: 500 MILLIGRAM
     Route: 048
     Dates: start: 20181203
  3. CALCIUM CARBONATE. [Concomitant]
     Active Substance: CALCIUM CARBONATE
     Indication: PRODUCT USED FOR UNKNOWN INDICATION
     Dosage: 500 MILLIGRAM, QD
  4. ANUSOL HC [Concomitant]
     Active Substance: HYDROCORTISONE
     Indication: PRODUCT USED FOR UNKNOWN INDICATION
     Dosage: UNK, BID, PRN
  5. SPIRONOLACTONE. [Concomitant]
     Active Substance: SPIRONOLACTONE
     Indication: PRODUCT USED FOR UNKNOWN INDICATION
     Dosage: 25 MILLIGRAM, QD
  6. FERROUS SULFATE. [Concomitant]
     Active Substance: FERROUS SULFATE
     Indication: PRODUCT USED FOR UNKNOWN INDICATION
     Dosage: 325 MILLIGRAM
  7. IMODIUM [Concomitant]
     Active Substance: LOPERAMIDE HYDROCHLORIDE
     Indication: PRODUCT USED FOR UNKNOWN INDICATION
     Dosage: UNK, PRN, DAILY
  8. NEURONTIN [Concomitant]
     Active Substance: GABAPENTIN
     Indication: PRODUCT USED FOR UNKNOWN INDICATION
     Dosage: 100 MILLIGRAM, QD
  9. DEXAMETHASONE. [Concomitant]
     Active Substance: DEXAMETHASONE
     Indication: PROPHYLAXIS
     Dosage: 10 MILLIGRAM
     Route: 042
     Dates: start: 20181203
  10. PEPTO-BISMOL [Concomitant]
     Active Substance: BISMUTH SUBSALICYLATE
     Indication: DIARRHOEA
     Dosage: UNK, PRN
     Route: 048
  11. RANITIDINE. [Concomitant]
     Active Substance: RANITIDINE
     Indication: PROPHYLAXIS
     Dosage: 50 MILLIGRAM
     Route: 042
     Dates: start: 20181203
  12. ZINC OXIDE. [Concomitant]
     Active Substance: ZINC OXIDE
     Indication: PRODUCT USED FOR UNKNOWN INDICATION
     Dosage: UNK, QD
  13. OMEPRAZOLE. [Concomitant]
     Active Substance: OMEPRAZOLE
     Indication: PRODUCT USED FOR UNKNOWN INDICATION
     Dosage: 20 MILLIGRAM, QD
  14. ONPATTRO [Suspect]
     Active Substance: PATISIRAN SODIUM
     Indication: HEREDITARY NEUROPATHIC AMYLOIDOSIS
     Dosage: UNK
     Route: 042
     Dates: start: 20181203
  15. DIPHENHYDRAMINE. [Concomitant]
     Active Substance: DIPHENHYDRAMINE
     Indication: PROPHYLAXIS
     Dosage: UNK
     Route: 042
     Dates: start: 20181203
  16. VITAMIN A [Concomitant]
     Active Substance: VITAMIN A
     Indication: PROPHYLAXIS
     Dosage: UNK, QD
  17. IBUPROFEN. [Concomitant]
     Active Substance: IBUPROFEN
     Indication: PRODUCT USED FOR UNKNOWN INDICATION
     Dosage: UNK, PRN
  18. KLOR-CON [Concomitant]
     Active Substance: POTASSIUM CHLORIDE
     Indication: PRODUCT USED FOR UNKNOWN INDICATION
     Dosage: 10 MILLIEQUIVALENT, BID
  19. FUROSEMIDE. [Concomitant]
     Active Substance: FUROSEMIDE
     Indication: PRODUCT USED FOR UNKNOWN INDICATION
     Dosage: 40 MILLIGRAM, QD
     Route: 048

REACTIONS (5)
  - Vomiting [Unknown]
  - Eye haemorrhage [Unknown]
  - Head discomfort [Unknown]
  - No adverse event [Unknown]
  - Product dose omission [Unknown]

NARRATIVE: CASE EVENT DATE: 20200129
